FAERS Safety Report 7773358-3 (Version None)
Quarter: 2011Q3

REPORT INFORMATION
  Report Type: 
  Country: None (occurrence: None)
  Receive Date: 20110922
  Receipt Date: 20110916
  Transmission Date: 20111222
  Serious: Yes (Hospitalization, Other)
  Sender: FDA-Public Use
  Company Number: US-AMGEN-USASP2010012881

PATIENT
  Age: 82 Year
  Sex: Female
  Weight: 104.76 kg

DRUGS (8)
  1. NPLATE [Suspect]
     Indication: IDIOPATHIC THROMBOCYTOPENIC PURPURA
     Dosage: 4 MUG/KG, QWK
     Route: 058
     Dates: start: 20100126, end: 20100801
  2. VITAMIN B-12 [Concomitant]
     Indication: ANAEMIA VITAMIN B12 DEFICIENCY
     Route: 058
  3. LASIX [Concomitant]
     Indication: OEDEMA PERIPHERAL
  4. CARDIZEM [Concomitant]
  5. DIGOXIN [Concomitant]
  6. DYAZIDE [Concomitant]
  7. FOLIC ACID [Concomitant]
     Indication: FOLATE DEFICIENCY
     Route: 048
  8. FERROUS SULFATE TAB [Concomitant]
     Indication: IRON DEFICIENCY
     Route: 042

REACTIONS (15)
  - ARTHRALGIA [None]
  - THERAPEUTIC EMBOLISATION [None]
  - TACHYCARDIA [None]
  - PRURITUS [None]
  - FATIGUE [None]
  - DECREASED APPETITE [None]
  - THERAPEUTIC RESPONSE DECREASED [None]
  - HEPATIC STEATOSIS [None]
  - EPISTAXIS [None]
  - SPLENOMEGALY [None]
  - HYPOTENSION [None]
  - PANCYTOPENIA [None]
  - CONSTIPATION [None]
  - DYSPNOEA EXERTIONAL [None]
  - DEHYDRATION [None]
